FAERS Safety Report 20030578 (Version 1)
Quarter: 2021Q4

REPORT INFORMATION
  Report Type: Spontaneous
  Country: US (occurrence: US)
  Receive Date: 20211103
  Receipt Date: 20211103
  Transmission Date: 20220304
  Serious: Yes (Other)
  Sender: FDA-Public Use
  Company Number: US-SA-2021SA355952

PATIENT
  Age: 38 Year
  Sex: Female

DRUGS (1)
  1. ALEMTUZUMAB [Suspect]
     Active Substance: ALEMTUZUMAB
     Indication: Multiple sclerosis
     Dosage: UNK UNK, QCY

REACTIONS (8)
  - Basedow^s disease [Recovered/Resolved]
  - Ocular icterus [Recovered/Resolved]
  - Hyperthyroidism [Recovered/Resolved]
  - Thyroid disorder [Recovered/Resolved]
  - Goitre [Recovered/Resolved]
  - Biliary obstruction [Recovering/Resolving]
  - Condition aggravated [Recovering/Resolving]
  - Cardiac failure acute [Recovering/Resolving]
